FAERS Safety Report 6422114-7 (Version None)
Quarter: 2009Q4

REPORT INFORMATION
  Report Type: 
  Country: None (occurrence: None)
  Receive Date: 20091030
  Receipt Date: 20091015
  Transmission Date: 20100525
  Serious: Yes (Death, Other)
  Sender: FDA-Public Use
  Company Number: BR-PFIZER INC-2009202596

PATIENT
  Age: 67 Year

DRUGS (7)
  1. SUTENT [Suspect]
     Indication: GASTROINTESTINAL STROMAL TUMOUR
     Dosage: 50 MG, 4 WEEKS ON 2 WEEKS OFF
     Dates: start: 20090301, end: 20090401
  2. DOXAZOSIN [Concomitant]
     Indication: PROSTATIC DISORDER
     Dosage: UNK
  3. OMEPRAZOLE [Concomitant]
     Indication: GASTROOESOPHAGEAL REFLUX DISEASE
     Dosage: UNK
  4. DOMPERIDONE [Concomitant]
     Indication: GASTROOESOPHAGEAL REFLUX DISEASE
     Dosage: UNK
  5. BUSCOPAN [Concomitant]
     Indication: DYSPEPSIA
     Dosage: UNK
  6. CODEINE [Concomitant]
     Indication: PAIN
     Dosage: UNK
  7. DICLOFENAC [Concomitant]
     Indication: PAIN
     Dosage: UNK

REACTIONS (11)
  - ASTHENIA [None]
  - BLISTER [None]
  - COMA [None]
  - DISEASE PROGRESSION [None]
  - DIZZINESS [None]
  - ERYTHEMA [None]
  - FATIGUE [None]
  - GASTROINTESTINAL STROMAL TUMOUR [None]
  - HYPOTENSION [None]
  - PAIN [None]
  - WEIGHT DECREASED [None]
